FAERS Safety Report 6347176-7 (Version None)
Quarter: 2009Q3

REPORT INFORMATION
  Report Type: 
  Country: None (occurrence: None)
  Receive Date: 20090910
  Receipt Date: 20090831
  Transmission Date: 20100115
  Serious: Yes (Other)
  Sender: FDA-Public Use
  Company Number: PHEH2009US10529

PATIENT
  Sex: Male

DRUGS (4)
  1. EXJADE [Suspect]
     Indication: MYELOFIBROSIS
     Dosage: 500 MG, DAILY
     Route: 048
     Dates: start: 20090812
  2. COREG [Concomitant]
     Dosage: UNK
  3. AMARYL [Concomitant]
     Dosage: UNK
  4. RAMIPRIL [Concomitant]
     Dosage: UNK

REACTIONS (3)
  - APNOEA [None]
  - FATIGUE [None]
  - PAIN [None]
